FAERS Safety Report 6428075-9 (Version None)
Quarter: 2009Q4

REPORT INFORMATION
  Report Type: 
  Country: None (occurrence: None)
  Receive Date: 20091105
  Receipt Date: 20091027
  Transmission Date: 20100525
  Serious: Yes (Hospitalization)
  Sender: FDA-Public Use
  Company Number: GB-ROCHE-665437

PATIENT
  Age: 41 Year
  Sex: Female

DRUGS (5)
  1. CAPECITABINE [Suspect]
     Route: 065
  2. TYVERB [Suspect]
     Dosage: DRUG WITHDRAWN
     Route: 048
     Dates: start: 20090601, end: 20090718
  3. MOTILIUM [Concomitant]
     Route: 065
  4. STEMETIL [Concomitant]
     Route: 065
  5. VITAMIN B6 [Concomitant]
     Route: 065

REACTIONS (12)
  - BLOOD DISORDER [None]
  - DEHYDRATION [None]
  - DIARRHOEA [None]
  - HEART RATE INCREASED [None]
  - HERPES ZOSTER [None]
  - HYPOTENSION [None]
  - ILEUS [None]
  - LOCALISED INFECTION [None]
  - MEGACOLON [None]
  - PYREXIA [None]
  - RENAL DISORDER [None]
  - SOMNOLENCE [None]
